FAERS Safety Report 7972210-8 (Version None)
Quarter: 2011Q4

REPORT INFORMATION
  Report Type: 
  Country: None (occurrence: None)
  Receive Date: 20111212
  Receipt Date: 20111130
  Transmission Date: 20120403
  Serious: Yes (Hospitalization)
  Sender: FDA-Public Use
  Company Number: CA-ELI_LILLY_AND_COMPANY-CA201101004071

PATIENT
  Age: 85 Year
  Sex: Female

DRUGS (7)
  1. FORTEO [Suspect]
     Dosage: 20 UG, QD
     Route: 058
     Dates: start: 20110301, end: 20110801
  2. OXYBUTYNIN [Concomitant]
  3. FORTEO [Suspect]
     Indication: OSTEOPOROSIS
     Dosage: 20 UG, DAILY (1/D)
     Route: 058
     Dates: start: 20090302, end: 20101201
  4. COENZYME [Concomitant]
  5. WARFARIN SODIUM [Concomitant]
  6. ATACAND [Concomitant]
  7. THYROID TAB [Concomitant]

REACTIONS (3)
  - POST PROCEDURAL COMPLICATION [None]
  - DEVICE DISLOCATION [None]
  - CYSTITIS [None]
